FAERS Safety Report 7473925-0 (Version None)
Quarter: 2011Q2

REPORT INFORMATION
  Report Type: 
  Country: None (occurrence: None)
  Receive Date: 20110511
  Receipt Date: 20110427
  Transmission Date: 20111010
  Serious: Yes (Other)
  Sender: FDA-Public Use
  Company Number: US-CELGENEUS-TAJPN-11-0247

PATIENT
  Sex: Female
  Weight: 54 kg

DRUGS (2)
  1. ABRAXANE [Suspect]
     Indication: BREAST CANCER METASTATIC
     Dosage: 400 MILLIGRAM
     Route: 041
     Dates: start: 20110203, end: 20110203
  2. ABRAXANE [Suspect]

REACTIONS (1)
  - ECZEMA [None]
